FAERS Safety Report 22821941 (Version 2)
Quarter: 2025Q3

REPORT INFORMATION
  Report Type: Spontaneous
  Country: EU (occurrence: EU)
  Receive Date: 20230814
  Receipt Date: 20250725
  Transmission Date: 20251021
  Serious: Yes (Other)
  Sender: DAIICHI
  Company Number: EU-DSJP-DSE-2023-127482

PATIENT
  Age: 77 Year
  Sex: Female
  Weight: 54 kg

DRUGS (9)
  1. TRASTUZUMAB DERUXTECAN [Suspect]
     Active Substance: TRASTUZUMAB DERUXTECAN
     Indication: HER2 negative breast cancer
     Route: 065
     Dates: start: 20220825, end: 20220825
  2. TRASTUZUMAB DERUXTECAN [Suspect]
     Active Substance: TRASTUZUMAB DERUXTECAN
     Indication: Breast cancer metastatic
     Route: 065
     Dates: start: 20221028, end: 20221028
  3. OMEPRAZOLE [Concomitant]
     Active Substance: OMEPRAZOLE
     Indication: Product use in unapproved indication
     Dosage: 20 MG, QD (1 IN THE MORNING)
     Route: 065
  4. CALCIUM SANDOZ D OSTEO [Concomitant]
     Indication: Product use in unapproved indication
     Dosage: UNK (500MG/400 I.E), QD (1 IN THE MORNING)
     Route: 065
  5. ASPIRIN [Concomitant]
     Active Substance: ASPIRIN
     Indication: Product use in unapproved indication
     Dosage: 100 MG, QD (1 IN THE EVENING)
     Route: 065
  6. CANDESARTAN RATIO [Concomitant]
     Indication: Product use in unapproved indication
     Dosage: 4 MG, QD (1 IN THE MORNING)
     Route: 065
  7. LETROZOLE [Concomitant]
     Active Substance: LETROZOLE
     Indication: Product use in unapproved indication
     Dosage: 2.5 MG, QD (1 IN THE EVENING)
     Route: 065
  8. SERTRALINE HYDROCHLORIDE [Concomitant]
     Active Substance: SERTRALINE HYDROCHLORIDE
     Indication: Product use in unapproved indication
     Dosage: 50 MG, QD
     Route: 065
  9. XGEVA [Concomitant]
     Active Substance: DENOSUMAB
     Indication: Product use in unapproved indication
     Dosage: 120 MG, ONCE EVERY 1 MO (1 IN THE MORNING)
     Route: 065

REACTIONS (7)
  - COVID-19 pneumonia [Unknown]
  - Idiopathic pulmonary fibrosis [Unknown]
  - Pneumonitis [Unknown]
  - Interstitial lung disease [Unknown]
  - Metastases to liver [Unknown]
  - Intentional product use issue [Recovered/Resolved]
  - Off label use [Recovered/Resolved]

NARRATIVE: CASE EVENT DATE: 20220825
